FAERS Safety Report 5225387-1 (Version None)
Quarter: 2007Q1

REPORT INFORMATION
  Report Type: 
  Country: None (occurrence: None)
  Receive Date: 20070131
  Receipt Date: 20070130
  Transmission Date: 20070707
  Serious: Yes (Hospitalization, Other)
  Sender: FDA-Public Use
  Company Number: US-SHR-US-2005-019366

PATIENT
  Age: 31 Year
  Sex: Female
  Weight: 86.168 kg

DRUGS (1)
  1. MIRENA [Suspect]
     Indication: CONTRACEPTION
     Dosage: 20 A?G/DAY, CONT
     Route: 015
     Dates: start: 20031003, end: 20061116

REACTIONS (3)
  - ROAD TRAFFIC ACCIDENT [None]
  - UTERINE PERFORATION [None]
  - VENTRICULAR FIBRILLATION [None]
